FAERS Safety Report 25452762 (Version 1)
Quarter: 2025Q2

REPORT INFORMATION
  Report Type: Spontaneous
  Country: JP (occurrence: JP)
  Receive Date: 20250618
  Receipt Date: 20250618
  Transmission Date: 20250717
  Serious: Yes (Other)
  Sender: UCB
  Company Number: JP-UCBJ-CD202507313UCBPHAPROD

PATIENT
  Age: 6 Decade
  Sex: Female

DRUGS (1)
  1. BIMZELX [Suspect]
     Active Substance: BIMEKIZUMAB-BKZX
     Indication: Pustular psoriasis
     Route: 058
     Dates: start: 20240312

REACTIONS (2)
  - Pustular psoriasis [Recovering/Resolving]
  - Benign familial pemphigus [Recovering/Resolving]

NARRATIVE: CASE EVENT DATE: 20240312
